FAERS Safety Report 6939648-9 (Version None)
Quarter: 2010Q3

REPORT INFORMATION
  Report Type: 
  Country: None (occurrence: None)
  Receive Date: 20100825
  Receipt Date: 20100816
  Transmission Date: 20110219
  Serious: Yes (Hospitalization)
  Sender: FDA-Public Use
  Company Number: US-BIOGENIDEC-2010BI008918

PATIENT
  Age: 38 Year
  Sex: Female

DRUGS (2)
  1. TYSABRI [Suspect]
     Indication: MULTIPLE SCLEROSIS
     Route: 042
     Dates: start: 20100127
  2. RESERPINE [Concomitant]
     Indication: HYPOTENSION

REACTIONS (5)
  - CARDIAC ARREST [None]
  - CONTUSION [None]
  - DYSPNOEA [None]
  - HYPOTENSION [None]
  - MULTIPLE SCLEROSIS RELAPSE [None]
